FAERS Safety Report 6084727-4 (Version None)
Quarter: 2009Q1

REPORT INFORMATION
  Report Type: 
  Country: None (occurrence: None)
  Receive Date: 20090217
  Receipt Date: 20090206
  Transmission Date: 20090719
  Serious: Yes (Death, Hospitalization, Other)
  Sender: FDA-Public Use
  Company Number: 2009AP000470

PATIENT
  Age: 2 Year
  Sex: Female

DRUGS (4)
  1. AMIODARONE HCL [Suspect]
     Indication: ARRHYTHMIA
  2. SIROLIMUS (SIROLIMUS) [Suspect]
     Indication: IMMUNOSUPPRESSION
     Dosage: 1 MG; PO; QD, 2 MG; PO; QD, 0.5 MG; PO; QD, 0.3 MG; PO; QD
     Route: 048
  3. TACROLIMUS [Suspect]
     Indication: IMMUNOSUPPRESSION
     Dosage: 0.4 MG; PO; BID, 0.2 MG; PO; BID
     Route: 048
  4. NADOLOL [Concomitant]

REACTIONS (12)
  - ALANINE AMINOTRANSFERASE INCREASED [None]
  - ASPARTATE AMINOTRANSFERASE INCREASED [None]
  - BLOOD ALBUMIN INCREASED [None]
  - DRUG INTERACTION [None]
  - DRUG LEVEL INCREASED [None]
  - HEPATIC FUNCTION ABNORMAL [None]
  - HYPERBILIRUBINAEMIA [None]
  - HYPOPHAGIA [None]
  - INTERNATIONAL NORMALISED RATIO INCREASED [None]
  - MEDICAL DEVICE COMPLICATION [None]
  - METABOLIC DISORDER [None]
  - WHITE BLOOD CELL COUNT DECREASED [None]
